FAERS Safety Report 13365821 (Version 2)
Quarter: 2017Q2

REPORT INFORMATION
  Report Type: Spontaneous
  Country: BR (occurrence: BR)
  Receive Date: 20170323
  Receipt Date: 20170518
  Transmission Date: 20170830
  Serious: Yes (Other)
  Sender: FDA-Public Use
  Company Number: BR-MERCK KGAA-1064587

PATIENT
  Age: 67 Year
  Sex: Female

DRUGS (1)
  1. NOVOTHYROX [Suspect]
     Active Substance: LEVOTHYROXINE SODIUM
     Indication: HYPOTHYROIDISM
     Route: 048

REACTIONS (10)
  - Procedural pain [Not Recovered/Not Resolved]
  - Alopecia [Unknown]
  - Weight increased [Unknown]
  - Nervousness [Unknown]
  - Blood thyroid stimulating hormone increased [Unknown]
  - Stress [Unknown]
  - Spinal disorder [Unknown]
  - Disorganised speech [Unknown]
  - Confusional state [Unknown]
  - Therapeutic response decreased [Unknown]

NARRATIVE: CASE EVENT DATE: 2016
